FAERS Safety Report 12846987 (Version 1)
Quarter: 2016Q4

REPORT INFORMATION
  Report Type: Spontaneous
  Country: US (occurrence: US)
  Receive Date: 20161013
  Receipt Date: 20161013
  Transmission Date: 20170207
  Serious: Yes (Hospitalization, Other)
  Sender: FDA-Public Use
  Company Number: None

PATIENT
  Age: 65 Year
  Sex: Female
  Weight: 57.15 kg

DRUGS (14)
  1. TOPIRAMATE. [Concomitant]
     Active Substance: TOPIRAMATE
  2. BUPROPION. [Concomitant]
     Active Substance: BUPROPION
  3. PROMETHAZINE [Concomitant]
     Active Substance: PROMETHAZINE\PROMETHAZINE HYDROCHLORIDE
  4. TRI-SALTS [Concomitant]
  5. ARMOUR THYROID [Concomitant]
     Active Substance: THYROID, PORCINE
  6. METHOCARBAMOL. [Concomitant]
     Active Substance: METHOCARBAMOL
  7. SYNTHROID [Concomitant]
     Active Substance: LEVOTHYROXINE SODIUM
  8. ZOLPIDEM [Concomitant]
     Active Substance: ZOLPIDEM\ZOLPIDEM TARTRATE
  9. HYOSCYAMINE SULFATE. [Suspect]
     Active Substance: HYOSCYAMINE SULFATE
     Indication: IRRITABLE BOWEL SYNDROME
     Dosage: ?          QUANTITY:1 TABLET(S); 4 TIMES A DAY?
     Route: 060
     Dates: start: 20160524, end: 20160928
  10. PANTOPRAZOLE [Concomitant]
     Active Substance: PANTOPRAZOLE SODIUM
  11. VITAMIN D [Concomitant]
     Active Substance: CHOLECALCIFEROL
  12. DHEA [Concomitant]
     Active Substance: PRASTERONE
  13. HYOSCYAMINE SULFATE. [Suspect]
     Active Substance: HYOSCYAMINE SULFATE
     Indication: COELIAC DISEASE
     Dosage: ?          QUANTITY:1 TABLET(S); 4 TIMES A DAY?
     Route: 060
     Dates: start: 20160524, end: 20160928
  14. VESICARE [Concomitant]
     Active Substance: SOLIFENACIN SUCCINATE

REACTIONS (3)
  - Heart rate increased [None]
  - Dehydration [None]
  - Gastrointestinal disorder [None]

NARRATIVE: CASE EVENT DATE: 20160531
